FAERS Safety Report 7002411-7 (Version None)
Quarter: 2010Q3

REPORT INFORMATION
  Report Type: 
  Country: None (occurrence: None)
  Receive Date: 20100920
  Receipt Date: 20100709
  Transmission Date: 20110219
  Serious: Yes (Hospitalization)
  Sender: FDA-Public Use
  Company Number: US-ASTRAZENECA-2010SE32105

PATIENT
  Sex: Male

DRUGS (4)
  1. SEROQUEL XR [Suspect]
     Indication: ANXIETY
     Route: 048
     Dates: start: 20070101, end: 20100101
  2. SEROQUEL XR [Suspect]
     Indication: SLEEP DISORDER
     Route: 048
     Dates: start: 20070101, end: 20100101
  3. LEXAPRO [Concomitant]
  4. SUBOXONE [Concomitant]

REACTIONS (3)
  - BLOOD GLUCOSE INCREASED [None]
  - FATIGUE [None]
  - WEIGHT INCREASED [None]
